FAERS Safety Report 25251808 (Version 2)
Quarter: 2025Q2

REPORT INFORMATION
  Report Type: Spontaneous
  Country: US (occurrence: US)
  Receive Date: 20250429
  Receipt Date: 20250429
  Transmission Date: 20250717
  Serious: Yes (Other)
  Sender: AMGEN
  Company Number: US-AMGEN-USASP2025079699

PATIENT
  Age: 26 Year
  Sex: Female

DRUGS (8)
  1. PREDNISONE [Suspect]
     Active Substance: PREDNISONE
     Indication: Tumour necrosis factor receptor-associated periodic syndrome
     Route: 065
  2. ADALIMUMAB [Suspect]
     Active Substance: ADALIMUMAB
     Indication: Still^s disease
     Route: 065
  3. METHOTREXATE [Concomitant]
     Active Substance: METHOTREXATE
     Indication: Still^s disease
  4. CANAKINUMAB [Concomitant]
     Active Substance: CANAKINUMAB
     Indication: Still^s disease
  5. METHYLPREDNISOLONE [Concomitant]
     Active Substance: METHYLPREDNISOLONE
  6. COLCHICINE [Concomitant]
     Active Substance: COLCHICINE
  7. IBUPROFEN [Concomitant]
     Active Substance: IBUPROFEN
  8. RILONACEPT [Concomitant]
     Active Substance: RILONACEPT

REACTIONS (3)
  - Pericarditis [Unknown]
  - Drug ineffective for unapproved indication [Unknown]
  - Off label use [Unknown]
